FAERS Safety Report 8766973 (Version 4)
Quarter: 2013Q3

REPORT INFORMATION
  Report Type: Spontaneous
  Country: US (occurrence: US)
  Receive Date: 20120903
  Receipt Date: 20130812
  Transmission Date: 20140515
  Serious: No
  Sender: FDA-Public Use
  Company Number: US-BAYER-2012-088189

PATIENT
  Age: 68 Year
  Sex: Female

DRUGS (2)
  1. ESTRADIOL HEMIHYDRATE (PATCH) [Suspect]
     Dosage: UNK UNK, OW
     Route: 062
     Dates: start: 20130204
  2. ESTRADIOL [Suspect]

REACTIONS (6)
  - Application site vesicles [Not Recovered/Not Resolved]
  - Application site pruritus [None]
  - Hot flush [Not Recovered/Not Resolved]
  - Feeling abnormal [Not Recovered/Not Resolved]
  - Muscle tightness [Not Recovered/Not Resolved]
  - Drug effect decreased [Not Recovered/Not Resolved]
